FAERS Safety Report 10082606 (Version 3)
Quarter: 2014Q4

REPORT INFORMATION
  Report Type: Report from Study
  Country: MX (occurrence: MX)
  Receive Date: 20140416
  Receipt Date: 20141110
  Transmission Date: 20150528
  Serious: Yes (Other)
  Sender: FDA-Public Use
  Company Number: PHHY2014MX011465

PATIENT
  Age: 57 Year
  Sex: Female
  Weight: 108 kg

DRUGS (2)
  1. EXFORGE HCT [Suspect]
     Active Substance: AMLODIPINE BESYLATE\HYDROCHLOROTHIAZIDE\VALSARTAN
     Indication: HYPERTENSION
     Dosage: 1 DF, (160/5/12,5 MG) DAILY
     Route: 048
     Dates: start: 201309, end: 201312
  2. EXFORGE HCT [Suspect]
     Active Substance: AMLODIPINE BESYLATE\HYDROCHLOROTHIAZIDE\VALSARTAN
     Dosage: 1 DF, (160/5/12,5 MG) PRN
     Route: 048
     Dates: start: 201312

REACTIONS (10)
  - Muscle spasms [Recovered/Resolved]
  - Diabetes mellitus [Not Recovered/Not Resolved]
  - Blood lactate dehydrogenase increased [Unknown]
  - Malaise [Not Recovered/Not Resolved]
  - Myocardial ischaemia [Not Recovered/Not Resolved]
  - Weight decreased [Recovered/Resolved]
  - Cardiomegaly [Not Recovered/Not Resolved]
  - Blood triglycerides increased [Unknown]
  - Dyspnoea [Not Recovered/Not Resolved]
  - Blood pressure decreased [Recovered/Resolved]

NARRATIVE: CASE EVENT DATE: 2013
